FAERS Safety Report 25551919 (Version 2)
Quarter: 2025Q3

REPORT INFORMATION
  Report Type: Spontaneous
  Country: US (occurrence: US)
  Receive Date: 20250714
  Receipt Date: 20250811
  Transmission Date: 20251021
  Serious: No
  Sender: SANOFI AVENTIS
  Company Number: US-SA-2025SA195596

PATIENT
  Age: 67 Year
  Sex: Male

DRUGS (15)
  1. DUPIXENT [Suspect]
     Active Substance: DUPILUMAB
     Indication: Nasal polyps
     Dosage: 300 MG, QOW
     Route: 058
     Dates: start: 202503
  2. NUCALA [Concomitant]
     Active Substance: MEPOLIZUMAB
     Dosage: 1 ML, Q4W
  3. ADVAIR HFA [Concomitant]
     Active Substance: FLUTICASONE PROPIONATE\SALMETEROL XINAFOATE
  4. ALBUTEROL SULFATE [Concomitant]
     Active Substance: ALBUTEROL SULFATE
  5. CETIRIZINE HCL [Concomitant]
     Active Substance: CETIRIZINE HYDROCHLORIDE
     Dosage: 1 DF, QD
  6. HUMALOG [Concomitant]
     Active Substance: INSULIN LISPRO
  7. IRON [Concomitant]
     Active Substance: IRON
     Dosage: 1 DF, QD
  8. LEVOTHYROXINE [Concomitant]
     Active Substance: LEVOTHYROXINE
     Dosage: 1 DF, QD
  9. METFORMIN HYDROCHLORIDE [Concomitant]
     Active Substance: METFORMIN HYDROCHLORIDE
     Dosage: 1 DF, BID
  10. METOPROLOL SUCCINATE [Concomitant]
     Active Substance: METOPROLOL SUCCINATE
     Dosage: 0.5 DF, BID
  11. PANTOPRAZOLE SODIUM [Concomitant]
     Active Substance: PANTOPRAZOLE SODIUM
     Dosage: 1 DF, BID
  12. REPAGLINIDE [Concomitant]
     Active Substance: REPAGLINIDE
     Dosage: 2 DF, TID
  13. TRESIBA [Concomitant]
     Active Substance: INSULIN DEGLUDEC
     Dosage: 36 DF, HS
  14. TRULICITY [Concomitant]
     Active Substance: DULAGLUTIDE
  15. XHANCE [Concomitant]
     Active Substance: FLUTICASONE PROPIONATE
     Dosage: 1 DF, BID

REACTIONS (3)
  - Joint swelling [Unknown]
  - Mobility decreased [Unknown]
  - Arthralgia [Unknown]

NARRATIVE: CASE EVENT DATE: 20250101
